FAERS Safety Report 4732066-3 (Version None)
Quarter: 2005Q3

REPORT INFORMATION
  Report Type: 
  Country: None (occurrence: None)
  Receive Date: 20050725
  Receipt Date: 20040621
  Transmission Date: 20060218
  Serious: Yes (Hospitalization)
  Sender: FDA-Public Use
  Company Number: WAES 0406USA02032

PATIENT

DRUGS (1)
  1. VIOXX [Suspect]
     Dosage: PO
     Route: 048
     Dates: start: 20040101, end: 20040401

REACTIONS (1)
  - MENINGITIS ASEPTIC [None]
